FAERS Safety Report 6522499-7 (Version None)
Quarter: 2009Q4

REPORT INFORMATION
  Report Type: 
  Country: None (occurrence: None)
  Receive Date: 20091230
  Receipt Date: 20091223
  Transmission Date: 20100525
  Serious: Yes (Hospitalization, Other)
  Sender: FDA-Public Use
  Company Number: US-AMGEN-QUU344780

PATIENT
  Sex: Female
  Weight: 63.6 kg

DRUGS (6)
  1. ENBREL [Suspect]
     Indication: RHEUMATOID ARTHRITIS
     Route: 058
     Dates: start: 20000905
  2. FELODIPINE [Suspect]
     Dates: start: 20060929
  3. METHOTREXATE [Concomitant]
     Dates: start: 19930315
  4. FOLIC ACID [Concomitant]
     Dates: start: 19980127
  5. GABAPENTIN [Concomitant]
     Dates: start: 20090112
  6. FOSAMAX [Concomitant]

REACTIONS (5)
  - BALANCE DISORDER [None]
  - BLOOD PRESSURE DECREASED [None]
  - FALL [None]
  - GAIT DISTURBANCE [None]
  - SKIN LACERATION [None]
